FAERS Safety Report 10397617 (Version 1)
Quarter: 2014Q3

REPORT INFORMATION
  Report Type: Spontaneous
  Country: US (occurrence: US)
  Receive Date: 20140821
  Receipt Date: 20140821
  Transmission Date: 20150326
  Serious: Yes (Other)
  Sender: FDA-Public Use
  Company Number: PHHY2014US100994

PATIENT
  Age: 36 Year
  Sex: Female

DRUGS (7)
  1. OXYCODONE/ACETAMINOPHEN [Concomitant]
     Active Substance: ACETAMINOPHEN\OXYCODONE\OXYCODONE HYDROCHLORIDE
  2. PROMETHAZINE [Concomitant]
     Active Substance: PROMETHAZINE\PROMETHAZINE HYDROCHLORIDE
  3. ONDANSETRON [Concomitant]
     Active Substance: ONDANSETRON
  4. TOPIRAMATE. [Suspect]
     Active Substance: TOPIRAMATE
  5. DEXLANSOPRAZOLE [Concomitant]
     Active Substance: DEXLANSOPRAZOLE
  6. MESALAMINE. [Concomitant]
     Active Substance: MESALAMINE
  7. SUMATRIPTAN [Concomitant]
     Active Substance: SUMATRIPTAN

REACTIONS (11)
  - Intraocular pressure increased [Recovered/Resolved]
  - Mydriasis [Recovered/Resolved]
  - Visual acuity reduced [Recovered/Resolved]
  - Headache [Recovered/Resolved]
  - Corneal pigmentation [Recovered/Resolved]
  - Iris adhesions [Recovered/Resolved]
  - Angle closure glaucoma [Recovered/Resolved]
  - Conjunctival hyperaemia [Recovered/Resolved]
  - Pupillary reflex impaired [Recovered/Resolved]
  - Corneal oedema [Recovered/Resolved]
  - Flat anterior chamber of eye [Recovered/Resolved]
